FAERS Safety Report 10610437 (Version 1)
Quarter: 2014Q4

REPORT INFORMATION
  Report Type: Spontaneous
  Country: US (occurrence: None)
  Receive Date: 20141124
  Receipt Date: 20141124
  Transmission Date: 20150529
  Serious: Yes (Hospitalization)
  Sender: FDA-Public Use
  Company Number: HA14-412-AE

PATIENT
  Age: 29 Year
  Sex: Male
  Weight: 86.18 kg

DRUGS (3)
  1. XANAX [Concomitant]
     Active Substance: ALPRAZOLAM
  2. VENLAFAXINE HCL [Suspect]
     Active Substance: VENLAFAXINE HYDROCHLORIDE
     Indication: PERSONALITY DISORDER
     Dosage: 1 TABLET
     Route: 048
     Dates: start: 20140924, end: 20141028
  3. ATIVAN [Concomitant]
     Active Substance: LORAZEPAM

REACTIONS (6)
  - Weight decreased [None]
  - Heart rate increased [None]
  - Tooth disorder [None]
  - Respiratory rate increased [None]
  - Paraesthesia [None]
  - Dysgeusia [None]

NARRATIVE: CASE EVENT DATE: 20140924
